FAERS Safety Report 4301113-5 (Version None)
Quarter: 2004Q1

REPORT INFORMATION
  Report Type: 
  Country: None (occurrence: None)
  Receive Date: 20040218
  Receipt Date: 20040203
  Transmission Date: 20041129
  Serious: Yes (Death)
  Sender: FDA-Public Use
  Company Number: YITD20040009

PATIENT
  Age: 70 Year
  Sex: Male

DRUGS (9)
  1. MILRINONE LACTATE [Suspect]
     Dosage: DR
     Route: 042
     Dates: start: 20040115, end: 20040120
  2. EPINEPHRINE [Concomitant]
  3. FUROSEMIDE [Concomitant]
  4. MINOCYCLINE HCL [Concomitant]
  5. DOPAMINE HYDROCHLORIDE [Concomitant]
  6. CARPERITIDE [Concomitant]
  7. DOBUTAMINE HCL [Concomitant]
  8. POTASSIUM CANRENOATE [Concomitant]
  9. URINASTATIN [Concomitant]

REACTIONS (2)
  - PLATELET COUNT DECREASED [None]
  - PULMONARY HAEMORRHAGE [None]
